FAERS Safety Report 24322952 (Version 1)
Quarter: 2024Q3

REPORT INFORMATION
  Report Type: Spontaneous
  Country: US (occurrence: US)
  Receive Date: 20240916
  Receipt Date: 20240916
  Transmission Date: 20241017
  Serious: No
  Sender: MERCK
  Company Number: US-009507513-2409USA002704

PATIENT
  Age: 55 Year
  Sex: Female

DRUGS (1)
  1. KEYTRUDA [Suspect]
     Active Substance: PEMBROLIZUMAB
     Indication: Endometrial cancer
     Dosage: IV INFUSION EVERY 3 WEEKS
     Route: 042
     Dates: start: 202406, end: 20240815

REACTIONS (1)
  - Poor venous access [Unknown]

NARRATIVE: CASE EVENT DATE: 20240101
